FAERS Safety Report 5478689-8 (Version None)
Quarter: 2007Q4

REPORT INFORMATION
  Report Type: 
  Country: None (occurrence: None)
  Receive Date: 20071005
  Receipt Date: 20071001
  Transmission Date: 20080405
  Serious: Yes (Life-Threatening, Hospitalization)
  Sender: FDA-Public Use
  Company Number: AT-ABBOTT-07P-009-0418970-00

PATIENT
  Sex: Male

DRUGS (2)
  1. ZEMPLAR [Suspect]
     Indication: HYPERPARATHYROIDISM SECONDARY
     Route: 042
     Dates: start: 20070410, end: 20070927
  2. ZEMPLAR [Suspect]
     Indication: RENAL FAILURE CHRONIC

REACTIONS (4)
  - BLOOD DISORDER [None]
  - DERMATITIS EXFOLIATIVE [None]
  - ERYSIPELOID [None]
  - HAEMOLYSIS [None]
